FAERS Safety Report 25840754 (Version 1)
Quarter: 2025Q3

REPORT INFORMATION
  Report Type: Spontaneous
  Country: CA (occurrence: CA)
  Receive Date: 20250924
  Receipt Date: 20250924
  Transmission Date: 20251020
  Serious: Yes (Other)
  Sender: ANI
  Company Number: CA-ANIPHARMA-2025-CA-002813

PATIENT
  Sex: Male

DRUGS (5)
  1. CANDESARTAN CILEXETIL [Suspect]
     Active Substance: CANDESARTAN CILEXETIL
     Indication: Product used for unknown indication
  2. DAPAGLIFLOZIN [Suspect]
     Active Substance: DAPAGLIFLOZIN
  3. METFORMIN [Concomitant]
     Active Substance: METFORMIN HYDROCHLORIDE
  4. PREGABALIN [Concomitant]
     Active Substance: PREGABALIN
  5. SEMAGLUTIDE [Concomitant]
     Active Substance: SEMAGLUTIDE

REACTIONS (2)
  - Blindness [Unknown]
  - Optic neuritis [Unknown]
